FAERS Safety Report 8513755-1 (Version None)
Quarter: 2012Q3

REPORT INFORMATION
  Report Type: 
  Country: None (occurrence: None)
  Receive Date: 20120705
  Receipt Date: 20120618
  Transmission Date: 20120928
  Serious: Yes (Hospitalization, Other)
  Sender: FDA-Public Use
  Company Number: 2012-000512

PATIENT
  Age: 66 Year
  Sex: Female

DRUGS (7)
  1. ACTONEL [Suspect]
     Indication: OSTEOPOROSIS
     Dosage: 35 MG ONCE WEEKLY, ORAL
     Route: 048
  2. VITAMIN D [Concomitant]
  3. ALENDRONATE SODIUM [Suspect]
     Dosage: 70 MG, ONCE WEEKLY, ORAL
     Route: 048
     Dates: start: 20081208, end: 20100501
  4. BABY ASPIRIN (ACETYLSALICYLIC CID) [Concomitant]
  5. VITAMIN E /00110501/ (TOCOPHEROL) [Concomitant]
  6. THYROID TAB [Concomitant]
  7. VERAPAMIL [Concomitant]

REACTIONS (5)
  - STRESS FRACTURE [None]
  - FRACTURE DISPLACEMENT [None]
  - FEMUR FRACTURE [None]
  - FALL [None]
  - ATYPICAL FEMUR FRACTURE [None]
